FAERS Safety Report 5616295-2 (Version None)
Quarter: 2008Q1

REPORT INFORMATION
  Report Type: 
  Country: None (occurrence: None)
  Receive Date: 20080204
  Receipt Date: 20080125
  Transmission Date: 20080703
  Serious: Yes (Hospitalization)
  Sender: FDA-Public Use
  Company Number: 2008SP001922

PATIENT
  Age: 71 Year
  Sex: Female
  Weight: 55.3 kg

DRUGS (1)
  1. TEMODAR [Suspect]
     Indication: GLIOBLASTOMA MULTIFORME
     Dosage: 115 MG;QD;PO
     Route: 048
     Dates: end: 20080121

REACTIONS (1)
  - DEHYDRATION [None]
